FAERS Safety Report 6655401-8 (Version None)
Quarter: 2010Q1

REPORT INFORMATION
  Report Type: 
  Country: None (occurrence: None)
  Receive Date: 20100329
  Receipt Date: 20100324
  Transmission Date: 20100710
  Serious: Yes (Disabling)
  Sender: FDA-Public Use
  Company Number: US-B.I. PHARMACEUTICALS,INC./RIDGEFIELD-2010-BP-03429BP

PATIENT
  Age: 65 Year
  Sex: Male

DRUGS (2)
  1. AGGRENOX [Suspect]
     Indication: HYPERTENSION
     Route: 048
     Dates: start: 20000101
  2. INSULIN [Concomitant]
     Indication: DIABETES MELLITUS

REACTIONS (3)
  - LEG AMPUTATION [None]
  - MIGRAINE [None]
  - NAUSEA [None]
